FAERS Safety Report 18302437 (Version 1)
Quarter: 2020Q3

REPORT INFORMATION
  Report Type: Report from Study
  Country: CA (occurrence: CA)
  Receive Date: 20200923
  Receipt Date: 20200923
  Transmission Date: 20201103
  Serious: Yes (Hospitalization)
  Sender: FDA-Public Use
  Company Number: CA-JNJFOC-20200924011

PATIENT
  Age: 15 Year
  Sex: Female

DRUGS (1)
  1. REMICADE [Suspect]
     Active Substance: INFLIXIMAB
     Indication: JUVENILE IDIOPATHIC ARTHRITIS
     Dosage: ON 09?SEP?2020, THE PATIENT RECEIVED 4TH INFLIXIMAB INFUSION FOR DOSE OF 150 MG
     Route: 042
     Dates: start: 20200630

REACTIONS (2)
  - Pain [Unknown]
  - Malnutrition [Unknown]
